FAERS Safety Report 13967883 (Version 2)
Quarter: 2017Q3

REPORT INFORMATION
  Report Type: Report from Study
  Country: AR (occurrence: AR)
  Receive Date: 20170914
  Receipt Date: 20170926
  Transmission Date: 20171128
  Serious: Yes (Death, Other)
  Sender: FDA-Public Use
  Company Number: PHHY2017AR135400

PATIENT
  Age: 67 Year
  Sex: Female

DRUGS (1)
  1. ENTRESTO [Suspect]
     Active Substance: SACUBITRIL\VALSARTAN
     Indication: CARDIAC FAILURE CHRONIC
     Dosage: 50 MG, BID
     Route: 065
     Dates: start: 20161115

REACTIONS (3)
  - Pulmonary arterial pressure increased [Unknown]
  - Cardio-respiratory arrest [Fatal]
  - Respiratory failure [Unknown]

NARRATIVE: CASE EVENT DATE: 20170403
